FAERS Safety Report 21279290 (Version 3)
Quarter: 2023Q2

REPORT INFORMATION
  Report Type: Spontaneous
  Country: US (occurrence: US)
  Receive Date: 20220901
  Receipt Date: 20230619
  Transmission Date: 20230721
  Serious: Yes (Other)
  Sender: FDA-Public Use
  Company Number: US-BRISTOL-MYERS SQUIBB COMPANY-2022-097329

PATIENT
  Age: 92 Year
  Sex: Female

DRUGS (3)
  1. REVLIMID [Suspect]
     Active Substance: LENALIDOMIDE
     Indication: Plasma cell myeloma
     Dosage: TAKE 1 CAPSULE BY MOUTH DAILY FOR 3 WEEKS ON, THEN 1 WEEK OFF. REPEAT EVERY 28 DAYS
     Route: 048
  2. REVLIMID [Suspect]
     Active Substance: LENALIDOMIDE
     Dosage: TAKE 1 CAPSULE BY MOUTH EVERY DAY FOR 3 WEEKS ON THEN 1 WEEK OFF
     Route: 048
     Dates: start: 20220817
  3. REVLIMID [Suspect]
     Active Substance: LENALIDOMIDE
     Route: 048
     Dates: start: 20221114

REACTIONS (10)
  - Fatigue [Recovering/Resolving]
  - Asphyxia [Unknown]
  - Constipation [Unknown]
  - Full blood count abnormal [Unknown]
  - Diarrhoea [Not Recovered/Not Resolved]
  - Pain [Unknown]
  - Decreased appetite [Unknown]
  - Dyspnoea exertional [Unknown]
  - Pain in extremity [Not Recovered/Not Resolved]
  - Peripheral swelling [Not Recovered/Not Resolved]
